FAERS Safety Report 6371367-2 (Version None)
Quarter: 2009Q3

REPORT INFORMATION
  Report Type: 
  Country: None (occurrence: None)
  Receive Date: 20090918
  Receipt Date: 20090918
  Transmission Date: 20100115
  Serious: Yes (Hospitalization)
  Sender: FDA-Public Use
  Company Number: None

PATIENT
  Age: 53 Year
  Sex: Female
  Weight: 50.53 kg

DRUGS (3)
  1. GEMCITABINE [Suspect]
     Indication: PANCREATIC CARCINOMA METASTATIC
     Dosage: 360 MG, EVERY 2 WKS, IV
     Route: 042
  2. FLUOROURACIL [Suspect]
     Dosage: 3600 MG, EVERY 3 WKS, IV
     Route: 042
  3. BEVACIZUMAB [Suspect]
     Dosage: 550MG, EVERY 2 WKS, IV
     Route: 042

REACTIONS (1)
  - DIVERTICULITIS [None]
